FAERS Safety Report 14137727 (Version 1)
Quarter: 2017Q4

REPORT INFORMATION
  Report Type: Spontaneous
  Country: US (occurrence: US)
  Receive Date: 20171027
  Receipt Date: 20171027
  Transmission Date: 20180321
  Serious: Yes (Other)
  Sender: FDA-Public Use
  Company Number: US-BAUSCH-BL-2017-029876

PATIENT
  Sex: Male

DRUGS (1)
  1. APRISO [Suspect]
     Active Substance: MESALAMINE
     Indication: COLITIS
     Route: 048

REACTIONS (3)
  - Procedural haemorrhage [Recovered/Resolved]
  - Off label use [Not Recovered/Not Resolved]
  - Precancerous skin lesion [Unknown]
